FAERS Safety Report 11890025 (Version 1)
Quarter: 2016Q1

REPORT INFORMATION
  Report Type: Spontaneous
  Country: US (occurrence: US)
  Receive Date: 20160105
  Receipt Date: 20160105
  Transmission Date: 20160526
  Serious: No
  Sender: FDA-Public Use
  Company Number: US-PFIZER INC-2015435825

PATIENT
  Age: 56 Year
  Sex: Female
  Weight: 147 kg

DRUGS (1)
  1. EMBEDA [Suspect]
     Active Substance: MORPHINE SULFATE\NALTREXONE HYDROCHLORIDE
     Indication: PAIN
     Dosage: 30 MG/1.2 MG, 2X/DAY
     Route: 048
     Dates: start: 20151204, end: 20151207

REACTIONS (6)
  - Drug withdrawal syndrome [Unknown]
  - Swollen tongue [Recovering/Resolving]
  - Heart rate increased [Recovering/Resolving]
  - Feeling abnormal [Unknown]
  - Nightmare [Unknown]
  - Headache [Not Recovered/Not Resolved]

NARRATIVE: CASE EVENT DATE: 20151204
